FAERS Safety Report 20542463 (Version 3)
Quarter: 2022Q1

REPORT INFORMATION
  Report Type: Report from Study
  Country: JP (occurrence: JP)
  Receive Date: 20220302
  Receipt Date: 20220310
  Transmission Date: 20220423
  Serious: Yes (Hospitalization, Other)
  Sender: FDA-Public Use
  Company Number: JP-BRISTOL-MYERS SQUIBB COMPANY-BMS-2022-019493

PATIENT
  Age: 71 Year
  Sex: Male
  Weight: 71 kg

DRUGS (14)
  1. NIVOLUMAB [Suspect]
     Active Substance: NIVOLUMAB
     Indication: Gastrooesophageal cancer
     Dosage: 480 MILLIGRAM
     Route: 042
     Dates: start: 20211027, end: 20220119
  2. REGORAFENIB [Suspect]
     Active Substance: REGORAFENIB
     Indication: Gastrooesophageal cancer
     Dosage: 90 MILLIGRAM
     Route: 048
     Dates: start: 20211027, end: 20220206
  3. HEPARINOID [Concomitant]
     Indication: Prophylaxis
     Dosage: 1 APPLICATION PRN
     Dates: start: 20210101
  4. AMLODIPINE BESYLATE [Concomitant]
     Active Substance: AMLODIPINE BESYLATE
     Indication: Product used for unknown indication
     Dosage: 2.5 MILLIGRAM, PRN
     Route: 048
     Dates: start: 20210101
  5. SODIUM HYALURONATE [Concomitant]
     Active Substance: HYALURONATE SODIUM
     Indication: Prophylaxis
     Dosage: 2 DROP, PRN
     Route: 061
     Dates: start: 20210101
  6. AZOSEMIDE [Concomitant]
     Active Substance: AZOSEMIDE
     Indication: Product used for unknown indication
     Dosage: 60 MILLIGRAM, QD
     Route: 048
     Dates: start: 20210101
  7. SPIRONOLACTONE [Concomitant]
     Active Substance: SPIRONOLACTONE
     Indication: Product used for unknown indication
     Dosage: 25 MILLIGRAM, QD
     Route: 048
     Dates: start: 20210101
  8. GLIMEPIRIDE [Concomitant]
     Active Substance: GLIMEPIRIDE
     Indication: Product used for unknown indication
     Dosage: 2 MILLIGRAM, QD
     Route: 048
     Dates: start: 20211027
  9. URSODIOL [Concomitant]
     Active Substance: URSODIOL
     Indication: Prophylaxis
     Dosage: 200 MILLIGRAM, TID
     Route: 048
     Dates: start: 20211104
  10. GLYCYRON [GLYCYRRHIZIC ACID, AMMONIUM SALT] [Concomitant]
     Indication: Prophylaxis
     Dosage: 2 TABLETS, TID
     Route: 048
     Dates: start: 20211104
  11. DIFLUPREDNATE [Concomitant]
     Active Substance: DIFLUPREDNATE
     Indication: Adverse event
     Dosage: 1 APPLICATION PRN
     Dates: start: 20211111
  12. RINDERON VG [Concomitant]
     Active Substance: BETAMETHASONE VALERATE\GENTAMICIN SULFATE
     Indication: Adverse event
     Dosage: 1 APPLICATION PRN
     Dates: start: 20211114
  13. LEVOTHYROXINE SODIUM [Concomitant]
     Active Substance: LEVOTHYROXINE SODIUM
     Indication: Adverse event
     Dosage: 100 MICROGRAM, QD
     Route: 048
     Dates: start: 20211222
  14. FUROSEMIDE [Concomitant]
     Active Substance: FUROSEMIDE
     Indication: Prophylaxis
     Dosage: 220 MILLIGRAM, QD
     Route: 048
     Dates: start: 20220119

REACTIONS (1)
  - Fulminant type 1 diabetes mellitus [Recovered/Resolved with Sequelae]

NARRATIVE: CASE EVENT DATE: 20220207
